FAERS Safety Report 8261910-0 (Version None)
Quarter: 2012Q2

REPORT INFORMATION
  Report Type: 
  Country: None (occurrence: None)
  Receive Date: 20120402
  Receipt Date: 20120316
  Transmission Date: 20120825
  Serious: Yes (Other)
  Sender: FDA-Public Use
  Company Number: 2012MA003770

PATIENT
  Age: 54 Year
  Sex: Female

DRUGS (6)
  1. CARBOPLATIN [Suspect]
     Indication: BREAST CANCER STAGE IV
     Dosage: 154 MG;IV
     Route: 042
     Dates: start: 20111102, end: 20120207
  2. DECADRON [Concomitant]
  3. ZANTAC [Concomitant]
  4. PACLITAXEL [Concomitant]
  5. ATARAX [Concomitant]
  6. NAVOBAN [Concomitant]

REACTIONS (6)
  - HYPOTENSION [None]
  - OXYGEN SATURATION DECREASED [None]
  - RASH [None]
  - ERYTHEMA [None]
  - CHEST DISCOMFORT [None]
  - CHEST PAIN [None]
